FAERS Safety Report 21535937 (Version 1)
Quarter: 2022Q4

REPORT INFORMATION
  Report Type: Spontaneous
  Country: US (occurrence: None)
  Receive Date: 20221031
  Receipt Date: 20221031
  Transmission Date: 20230112
  Serious: Yes (Other)
  Sender: FDA-Public Use
  Company Number: None

PATIENT

DRUGS (9)
  1. CEFDINIR [Suspect]
     Active Substance: CEFDINIR
  2. CEFTRIAXONE [Suspect]
     Active Substance: CEFTRIAXONE
  3. OMEPRAZOLE [Suspect]
     Active Substance: OMEPRAZOLE
  4. PANTOPRAZOLE [Suspect]
     Active Substance: PANTOPRAZOLE
  5. PREDNISONE [Suspect]
     Active Substance: PREDNISONE
  6. BISMUTH SUBCITRATE [Suspect]
     Active Substance: BISMUTH SUBCITRATE
  7. POTASSIUM [Suspect]
     Active Substance: POTASSIUM
  8. METRONIDAZOLE [Suspect]
     Active Substance: METRONIDAZOLE
  9. TETRACYCLINE [Suspect]
     Active Substance: TETRACYCLINE

REACTIONS (5)
  - Abdominal discomfort [None]
  - Diarrhoea [None]
  - Oropharyngeal pain [None]
  - Productive cough [None]
  - Clostridium test positive [None]

NARRATIVE: CASE EVENT DATE: 20210813
